FAERS Safety Report 15060776 (Version 1)
Quarter: 2018Q2

REPORT INFORMATION
  Report Type: Spontaneous
  Country: FR (occurrence: FR)
  Receive Date: 20180625
  Receipt Date: 20180625
  Transmission Date: 20180711
  Serious: Yes (Other)
  Sender: FDA-Public Use
  Company Number: FR-ASTELLAS-2018US027673

PATIENT
  Age: 37 Year
  Sex: Female
  Weight: 53 kg

DRUGS (3)
  1. VESICARE [Suspect]
     Active Substance: SOLIFENACIN SUCCINATE
     Indication: HYPERTONIC BLADDER
     Route: 048
     Dates: start: 20151210, end: 20170118
  2. NEURONTIN [Suspect]
     Active Substance: GABAPENTIN
     Indication: MULTIPLE SCLEROSIS
     Route: 048
     Dates: start: 20141121, end: 20170118
  3. TRILEPTAL [Suspect]
     Active Substance: OXCARBAZEPINE
     Indication: MULTIPLE SCLEROSIS
     Route: 048
     Dates: start: 20141121, end: 20170118

REACTIONS (3)
  - Umbilical cord abnormality [Unknown]
  - Maternal exposure during pregnancy [Unknown]
  - Haemorrhage in pregnancy [Unknown]

NARRATIVE: CASE EVENT DATE: 20170914
